FAERS Safety Report 23869018 (Version 1)
Quarter: 2024Q2

REPORT INFORMATION
  Report Type: Spontaneous
  Country: GB (occurrence: GB)
  Receive Date: 20240517
  Receipt Date: 20240517
  Transmission Date: 20240716
  Serious: Yes (Death, Other)
  Sender: FDA-Public Use
  Company Number: GB-GERMAN-LIT/GBR/24/0007101

PATIENT
  Age: 67 Year
  Sex: Male

DRUGS (5)
  1. ATORVASTATIN [Suspect]
     Active Substance: ATORVASTATIN
     Indication: Nephrotic syndrome
  2. HUMAN IMMUNOGLOBULIN G [Suspect]
     Active Substance: HUMAN IMMUNOGLOBULIN G
     Indication: Hypergammaglobulinaemia
  3. FUROSEMIDE [Suspect]
     Active Substance: FUROSEMIDE
     Indication: Nephrotic syndrome
  4. HEPARIN [Suspect]
     Active Substance: HEPARIN SODIUM
     Indication: Nephrotic syndrome
  5. PREDNISOLONE [Suspect]
     Active Substance: PREDNISOLONE
     Indication: Nephrotic syndrome
     Route: 048

REACTIONS (8)
  - Intestinal ischaemia [Fatal]
  - Necrotising fasciitis [Fatal]
  - Sepsis [Fatal]
  - Hypogammaglobulinaemia [Fatal]
  - Fungaemia [Fatal]
  - Endocarditis [Fatal]
  - Enterobacter infection [Fatal]
  - Drug ineffective for unapproved indication [Unknown]
